FAERS Safety Report 9826774 (Version 1)
Quarter: 2014Q1

REPORT INFORMATION
  Report Type: Spontaneous
  Country: US (occurrence: US)
  Receive Date: 20140117
  Receipt Date: 20140117
  Transmission Date: 20141002
  Serious: No
  Sender: FDA-Public Use
  Company Number: US-BIOGENIDEC-2014BI002813

PATIENT
  Sex: Female

DRUGS (6)
  1. TECFIDERA [Suspect]
     Indication: MULTIPLE SCLEROSIS
     Route: 048
     Dates: start: 20131002
  2. AMPYRA [Concomitant]
  3. BACLOFEN [Concomitant]
  4. EFFIENT [Concomitant]
  5. METOPROLOL SUCCINATE [Concomitant]
  6. RANITIDINE HCL [Concomitant]

REACTIONS (1)
  - Nasopharyngitis [Unknown]
